FAERS Safety Report 22628908 (Version 6)
Quarter: 2024Q4

REPORT INFORMATION
  Report Type: Spontaneous
  Country: US (occurrence: US)
  Receive Date: 20230622
  Receipt Date: 20241011
  Transmission Date: 20250115
  Serious: Yes (Other)
  Sender: GLAXOSMITHKLINE
  Company Number: US-GSK-US2023084938

PATIENT
  Age: 71 Year
  Sex: Female
  Weight: 101.6 kg

DRUGS (1)
  1. TRELEGY ELLIPTA [Suspect]
     Active Substance: FLUTICASONE FUROATE\UMECLIDINIUM BROMIDE\VILANTEROL TRIFENATATE
     Indication: Asthma
     Dosage: 1 PUFF(S), QD  200-62.5-25MCG
     Dates: start: 2022

REACTIONS (4)
  - Pneumonia [Recovered/Resolved]
  - Pneumonia bacterial [Not Recovered/Not Resolved]
  - Mycobacterium avium complex infection [Unknown]
  - Cough [Unknown]

NARRATIVE: CASE EVENT DATE: 20220601
